FAERS Safety Report 18443215 (Version 2)
Quarter: 2020Q4

REPORT INFORMATION
  Report Type: Spontaneous
  Country: FR (occurrence: FR)
  Receive Date: 20201029
  Receipt Date: 20201102
  Transmission Date: 20210114
  Serious: No
  Sender: FDA-Public Use
  Company Number: FR-009507513-2010FRA009539

PATIENT
  Sex: Female

DRUGS (1)
  1. LIPTRUZET [Suspect]
     Active Substance: ATORVASTATIN CALCIUM\EZETIMIBE
     Indication: HYPERCHOLESTEROLAEMIA
     Dosage: UNK
     Route: 048

REACTIONS (4)
  - Stent placement [Unknown]
  - Tendon pain [Unknown]
  - Muscular weakness [Unknown]
  - Muscle strain [Unknown]

NARRATIVE: CASE EVENT DATE: 2016
